FAERS Safety Report 7397519-0 (Version None)
Quarter: 2011Q2

REPORT INFORMATION
  Report Type: 
  Country: None (occurrence: None)
  Receive Date: 20110406
  Receipt Date: 20110324
  Transmission Date: 20111010
  Serious: Yes (Hospitalization, Other)
  Sender: FDA-Public Use
  Company Number: PHHY2011US24392

PATIENT
  Age: 73 Year

DRUGS (1)
  1. WARFARIN SODIUM [Suspect]

REACTIONS (3)
  - BLOOD PRESSURE SYSTOLIC INCREASED [None]
  - HAEMORRHAGE INTRACRANIAL [None]
  - HAEMATOMA [None]
